FAERS Safety Report 4609149-1 (Version None)
Quarter: 2005Q1

REPORT INFORMATION
  Report Type: 
  Country: None (occurrence: None)
  Receive Date: 20050311
  Receipt Date: 20040907
  Transmission Date: 20050727
  Serious: Yes (Other)
  Sender: FDA-Public Use
  Company Number: 2005040524

PATIENT
  Sex: Female

DRUGS (3)
  1. CELEBREX [Suspect]
     Indication: ILL-DEFINED DISORDER
  2. ROFECOXIB [Suspect]
     Indication: ILL-DEFINED DISORDER
  3. ASPIRIN [Concomitant]

REACTIONS (3)
  - COLONIC HAEMORRHAGE [None]
  - GASTRIC DISORDER [None]
  - GASTRIC ULCER HAEMORRHAGE [None]
